FAERS Safety Report 21519595 (Version 1)
Quarter: 2022Q4

REPORT INFORMATION
  Report Type: Spontaneous
  Country: US (occurrence: None)
  Receive Date: 20221028
  Receipt Date: 20221028
  Transmission Date: 20230113
  Serious: No
  Sender: FDA-Public Use
  Company Number: 2022A337109

PATIENT
  Sex: Female

DRUGS (1)
  1. PULMICORT FLEXHALER [Suspect]
     Active Substance: BUDESONIDE
     Indication: Asthma
     Route: 055
     Dates: start: 20220924

REACTIONS (6)
  - Arthritis [Unknown]
  - Chest discomfort [Unknown]
  - Product dose omission issue [Unknown]
  - Product dose omission issue [Unknown]
  - Device use issue [Unknown]
  - Drug ineffective [Unknown]
